FAERS Safety Report 21133868 (Version 1)
Quarter: 2022Q3

REPORT INFORMATION
  Report Type: Other
  Country: US (occurrence: None)
  Receive Date: 20220726
  Receipt Date: 20220726
  Transmission Date: 20221027
  Serious: No
  Sender: FDA-Public Use
  Company Number: US-ROCHE-3145636

PATIENT
  Age: 69 Year
  Sex: Female
  Weight: 73.548 kg

DRUGS (16)
  1. OCREVUS [Suspect]
     Active Substance: OCRELIZUMAB
     Indication: Relapsing multiple sclerosis
     Route: 042
     Dates: start: 202006
  2. ADDERALL [Concomitant]
     Active Substance: AMPHETAMINE ASPARTATE\AMPHETAMINE SULFATE\DEXTROAMPHETAMINE SACCHARATE\DEXTROAMPHETAMINE SULFATE
     Dosage: PATIENT TAKES IT IN THE MORNING
     Route: 048
  3. AMPYRA [Concomitant]
     Active Substance: DALFAMPRIDINE
     Route: 048
  4. BACLOFEN [Concomitant]
     Active Substance: BACLOFEN
     Indication: Muscle spasms
     Dosage: TAKE 2 TABLET
     Route: 048
  5. DONEPEZIL [Concomitant]
     Active Substance: DONEPEZIL
     Route: 048
  6. PROZAC [Concomitant]
     Active Substance: FLUOXETINE HYDROCHLORIDE
     Route: 048
  7. MECLIZINE [Concomitant]
     Active Substance: MECLIZINE HYDROCHLORIDE
     Dosage: EVERY 6 HOURS AS NEEDED
     Route: 048
     Dates: start: 2021
  8. ONDANSETRON [Concomitant]
     Active Substance: ONDANSETRON
     Indication: Nausea
     Route: 048
  9. ONDANSETRON [Concomitant]
     Active Substance: ONDANSETRON
     Indication: Vomiting
  10. OXYBUTYNIN [Concomitant]
     Active Substance: OXYBUTYNIN
  11. TOPIRAMATE [Concomitant]
     Active Substance: TOPIRAMATE
     Route: 048
  12. TRAZODONE [Concomitant]
     Active Substance: TRAZODONE HYDROCHLORIDE
     Indication: Insomnia
     Route: 048
  13. VITAMIN C [Concomitant]
     Active Substance: ASCORBIC ACID
     Indication: Multiple sclerosis
     Route: 048
  14. COD LIVER OIL [Concomitant]
     Active Substance: COD LIVER OIL
     Indication: Multiple sclerosis
     Route: 048
     Dates: start: 1982
  15. CRANBERRY [Concomitant]
     Active Substance: CRANBERRY
     Indication: Multiple sclerosis
     Route: 048
     Dates: start: 1982
  16. NAPROXEN [Concomitant]
     Active Substance: NAPROXEN

REACTIONS (4)
  - COVID-19 [Recovered/Resolved]
  - Migraine [Not Recovered/Not Resolved]
  - Asthenia [Not Recovered/Not Resolved]
  - Memory impairment [Not Recovered/Not Resolved]

NARRATIVE: CASE EVENT DATE: 20201001
